FAERS Safety Report 8088062-4 (Version None)
Quarter: 2012Q1

REPORT INFORMATION
  Report Type: 
  Country: None (occurrence: None)
  Receive Date: 20120128
  Receipt Date: 20110528
  Transmission Date: 20120608
  Serious: No
  Sender: FDA-Public Use
  Company Number: US-ABBOTT-11P-163-0729213-00

PATIENT
  Age: 28 Year
  Sex: Male

DRUGS (6)
  1. CRESTOR [Concomitant]
     Indication: BLOOD CHOLESTEROL INCREASED
  2. DOXYCYCLINE [Concomitant]
     Indication: LYME DISEASE
  3. XANAX [Concomitant]
     Indication: PANIC ATTACK
  4. PERCOCET [Concomitant]
     Indication: ARTHRALGIA
  5. PRILOSEC [Concomitant]
     Indication: GASTRIC PH DECREASED
  6. HUMIRA [Suspect]
     Indication: PSORIATIC ARTHROPATHY
     Dates: start: 20110512

REACTIONS (5)
  - INJECTION SITE ERYTHEMA [None]
  - INJECTION SITE SWELLING [None]
  - INJECTION SITE PRURITUS [None]
  - INJECTION SITE NODULE [None]
  - INJECTION SITE PAIN [None]
